FAERS Safety Report 7396094-4 (Version None)
Quarter: 2011Q2

REPORT INFORMATION
  Report Type: 
  Country: None (occurrence: None)
  Receive Date: 20110406
  Receipt Date: 20110325
  Transmission Date: 20111010
  Serious: No
  Sender: FDA-Public Use
  Company Number: US-JNJFOC-20110311756

PATIENT
  Sex: Male

DRUGS (3)
  1. ABILIFY [Concomitant]
     Route: 048
  2. ABILIFY [Concomitant]
     Indication: SCHIZOPHRENIA
     Route: 048
  3. INVEGA [Suspect]
     Indication: SCHIZOPHRENIA
     Route: 048

REACTIONS (5)
  - DELUSION [None]
  - DRUG INEFFECTIVE [None]
  - PSYCHOTIC DISORDER [None]
  - HALLUCINATION [None]
  - WITHDRAWAL SYNDROME [None]
